FAERS Safety Report 7470932-9 (Version None)
Quarter: 2011Q2

REPORT INFORMATION
  Report Type: 
  Country: None (occurrence: None)
  Receive Date: 20110510
  Receipt Date: 20110505
  Transmission Date: 20111010
  Serious: No
  Sender: FDA-Public Use
  Company Number: US-PFIZER INC-2011075551

PATIENT
  Sex: Female

DRUGS (2)
  1. DEPO-PROVERA [Suspect]
     Indication: CONTRACEPTION
     Dosage: 150 MG, 13 WEEKS
     Route: 030
     Dates: start: 20080310, end: 20110223
  2. CLINDAMYCIN [Concomitant]
     Indication: INFECTION
     Dosage: UNK
     Dates: start: 20110223, end: 20110301

REACTIONS (2)
  - UNINTENDED PREGNANCY [None]
  - INAPPROPRIATE SCHEDULE OF DRUG ADMINISTRATION [None]
